FAERS Safety Report 16733547 (Version 2)
Quarter: 2019Q3

REPORT INFORMATION
  Report Type: Report from Study
  Country: US (occurrence: US)
  Receive Date: 20190823
  Receipt Date: 20190916
  Transmission Date: 20191005
  Serious: No
  Sender: FDA-Public Use
  Company Number: PHEH2019US034771

PATIENT
  Age: 43 Year
  Sex: Female
  Weight: 64.41 kg

DRUGS (1)
  1. COSENTYX [Suspect]
     Active Substance: SECUKINUMAB
     Indication: PSORIASIS
     Dosage: 300 MG, QMO
     Route: 058
     Dates: start: 20190417

REACTIONS (5)
  - Pain of skin [Not Recovered/Not Resolved]
  - Psoriasis [Recovered/Resolved with Sequelae]
  - Pruritus [Unknown]
  - Injection site bruising [Recovered/Resolved with Sequelae]
  - Device malfunction [Recovered/Resolved with Sequelae]

NARRATIVE: CASE EVENT DATE: 20190822
